FAERS Safety Report 5910813-2 (Version None)
Quarter: 2008Q4

REPORT INFORMATION
  Report Type: 
  Country: None (occurrence: None)
  Receive Date: 20081007
  Receipt Date: 20080521
  Transmission Date: 20090506
  Serious: No
  Sender: FDA-Public Use
  Company Number: US-ASTRAZENECA-2008UW10388

PATIENT
  Sex: Female

DRUGS (3)
  1. ARIMIDEX [Suspect]
     Route: 048
  2. TAMOXIFEN CITRATE [Suspect]
     Route: 048
  3. AROMASIN [Concomitant]

REACTIONS (3)
  - ABDOMINAL DISTENSION [None]
  - FLUID RETENTION [None]
  - SWELLING [None]
